FAERS Safety Report 10410069 (Version 1)
Quarter: 2014Q3

REPORT INFORMATION
  Report Type: Spontaneous
  Country: JP (occurrence: JP)
  Receive Date: 20140826
  Receipt Date: 20140826
  Transmission Date: 20150326
  Serious: Yes (Hospitalization)
  Sender: FDA-Public Use
  Company Number: JP-EISAI-201403849

PATIENT
  Age: 78 Year
  Sex: Male

DRUGS (4)
  1. CALONAL [Concomitant]
     Active Substance: ACETAMINOPHEN
     Indication: PAIN
  2. LUNESTA [Suspect]
     Active Substance: ESZOPICLONE
     Indication: INSOMNIA
     Route: 048
     Dates: start: 20140813, end: 20140813
  3. LUNESTA [Suspect]
     Active Substance: ESZOPICLONE
     Indication: INSOMNIA
     Route: 048
     Dates: start: 20140812, end: 20140812
  4. THYRADIN [Concomitant]
     Active Substance: LEVOTHYROXINE
     Indication: THYROID CANCER

REACTIONS (2)
  - Altered state of consciousness [Recovering/Resolving]
  - Overdose [None]

NARRATIVE: CASE EVENT DATE: 20140813
